FAERS Safety Report 20577451 (Version 1)
Quarter: 2022Q1

REPORT INFORMATION
  Report Type: Spontaneous
  Country: US (occurrence: US)
  Receive Date: 20220310
  Receipt Date: 20220310
  Transmission Date: 20220423
  Serious: Yes (Hospitalization, Other)
  Sender: FDA-Public Use
  Company Number: US-Hikma Pharmaceuticals USA Inc.-US-H14001-22-00637

PATIENT
  Age: 19 Year
  Sex: Female
  Weight: 41.7 kg

DRUGS (8)
  1. DEXAMETHASONE [Suspect]
     Active Substance: DEXAMETHASONE
     Indication: Product used for unknown indication
     Dosage: 6 MG/M2 (ROUND TO THE NEAREST 2 MG DOSE), ORALLY OR INTRAVENOUSLY DIVIDED TWICE A DAY
     Route: 048
  2. DEXAMETHASONE [Suspect]
     Active Substance: DEXAMETHASONE
     Indication: Product used for unknown indication
     Dosage: 6 MG/M2 (ROUND TO THE NEAREST 2 MG DOSE), ORALLY OR INTRAVENOUSLY DIVIDED TWICE A DAY
     Route: 042
  3. METHOTREXATE [Suspect]
     Active Substance: METHOTREXATE
     Indication: Acute lymphocytic leukaemia
     Dosage: 20 MG/M2 (ROUND TO NEAREST 2.5 MG DOSE)
     Route: 048
     Dates: start: 20200826
  4. METHOTREXATE [Suspect]
     Active Substance: METHOTREXATE
     Indication: Acute lymphocytic leukaemia
     Route: 037
     Dates: start: 20200826
  5. MERCAPTOPURINE [Suspect]
     Active Substance: MERCAPTOPURINE
     Indication: Acute lymphocytic leukaemia
     Route: 048
     Dates: start: 20200826
  6. HYDROCORTISONE [Suspect]
     Active Substance: HYDROCORTISONE
     Indication: Acute lymphocytic leukaemia
     Route: 037
     Dates: start: 20200826
  7. INOTUZUMAB OZOGAMICIN [Suspect]
     Active Substance: INOTUZUMAB OZOGAMICIN
     Indication: Acute lymphocytic leukaemia
     Dosage: UNKNOWN
     Route: 065
     Dates: start: 20200826
  8. VINCRISTINE SULFATE [Suspect]
     Active Substance: VINCRISTINE SULFATE
     Indication: Acute lymphocytic leukaemia
     Dosage: 1.5 MG/M2 (MAXIMUM DOSE 2 MG)
     Route: 042
     Dates: start: 20200826

REACTIONS (11)
  - Sepsis [Recovered/Resolved]
  - Staphylococcal bacteraemia [Recovered/Resolved]
  - Purulent discharge [Unknown]
  - Injection site erythema [Unknown]
  - Suspected transmission of an infectious agent via product [Recovered/Resolved]
  - Fall [Unknown]
  - Arthralgia [Recovered/Resolved]
  - Joint swelling [Unknown]
  - Soft tissue inflammation [Unknown]
  - Superficial vein thrombosis [Unknown]
  - Deep vein thrombosis [Unknown]

NARRATIVE: CASE EVENT DATE: 20220117
